FAERS Safety Report 17461739 (Version 1)
Quarter: 2020Q1

REPORT INFORMATION
  Report Type: Report from Study
  Country: US (occurrence: US)
  Receive Date: 20200226
  Receipt Date: 20200226
  Transmission Date: 20200409
  Serious: Yes (Death, Hospitalization)
  Sender: FDA-Public Use
  Company Number: US-PFIZER INC-2019487946

PATIENT
  Age: 43 Year
  Sex: Male

DRUGS (1)
  1. IBRANCE [Suspect]
     Active Substance: PALBOCICLIB
     Indication: BREAST CANCER
     Dosage: 125 MG, CYCLIC (DAILY DAY 1-21 OF 28 DAY CYCLE)
     Route: 048
     Dates: start: 201910, end: 202002

REACTIONS (9)
  - Death [Fatal]
  - Product dose omission [Unknown]
  - Oropharyngeal candidiasis [Recovering/Resolving]
  - Influenza [Unknown]
  - Frequent bowel movements [Unknown]
  - Oral candidiasis [Recovering/Resolving]
  - Feeding disorder [Recovering/Resolving]
  - Diarrhoea [Unknown]
  - Hunger [Unknown]

NARRATIVE: CASE EVENT DATE: 2019
